FAERS Safety Report 25453886 (Version 1)
Quarter: 2025Q2

REPORT INFORMATION
  Report Type: Spontaneous
  Country: US (occurrence: US)
  Receive Date: 20250619
  Receipt Date: 20250619
  Transmission Date: 20250717
  Serious: No
  Sender: GLAXOSMITHKLINE
  Company Number: US-GSK-US2025070788

PATIENT
  Age: 70 Year
  Sex: Female

DRUGS (2)
  1. NUCALA [Suspect]
     Active Substance: MEPOLIZUMAB
     Indication: Product used for unknown indication
     Dosage: 100 MG, Q4W
     Dates: start: 2025
  2. PREDNISONE [Concomitant]
     Active Substance: PREDNISONE
     Indication: Dyspnoea

REACTIONS (5)
  - Dyspnoea [Unknown]
  - Inflammation [Unknown]
  - Lymphadenopathy [Unknown]
  - Eyelid ptosis [Unknown]
  - Nasal septum deviation [Unknown]
